FAERS Safety Report 5734795-1 (Version None)
Quarter: 2008Q2

REPORT INFORMATION
  Report Type: 
  Country: None (occurrence: None)
  Receive Date: 20080508
  Receipt Date: 20080501
  Transmission Date: 20081010
  Serious: Yes (Hospitalization, Other)
  Sender: FDA-Public Use
  Company Number: 2008US001248

PATIENT
  Sex: Female

DRUGS (2)
  1. PROGRAF [Suspect]
     Indication: LIVER TRANSPLANT
     Dosage: ORAL
     Route: 048
  2. CORTICOSTEROIDS [Concomitant]

REACTIONS (2)
  - HEPATIC FAILURE [None]
  - TREATMENT NONCOMPLIANCE [None]
